FAERS Safety Report 8774649 (Version 2)
Quarter: 2013Q4

REPORT INFORMATION
  Report Type: Spontaneous
  Country: KR (occurrence: KR)
  Receive Date: 20120907
  Receipt Date: 20131031
  Transmission Date: 20140711
  Serious: Yes (Other)
  Sender: FDA-Public Use
  Company Number: KR-009507513-1209KOR000377

PATIENT
  Sex: Female

DRUGS (1)
  1. IMPLANON [Suspect]
     Indication: CONTRACEPTION
     Dosage: UNK
     Route: 059
     Dates: start: 201201, end: 20120830

REACTIONS (1)
  - Breast cancer [Recovering/Resolving]
